FAERS Safety Report 6404549-1 (Version None)
Quarter: 2009Q4

REPORT INFORMATION
  Report Type: 
  Country: None (occurrence: None)
  Receive Date: 20091016
  Receipt Date: 20091012
  Transmission Date: 20100525
  Serious: Yes (Life-Threatening)
  Sender: FDA-Public Use
  Company Number: PHHY2009IN44250

PATIENT
  Age: 54 Year
  Sex: Female

DRUGS (4)
  1. ACLASTA [Suspect]
     Dosage: 5 MG /100 ML
     Dates: start: 20091007
  2. TAXIM [Concomitant]
  3. GENTAMICIN [Concomitant]
  4. CEFUROXIME AXETIL [Concomitant]
     Route: 048

REACTIONS (3)
  - HAEMOLYTIC ANAEMIA [None]
  - JAUNDICE [None]
  - PYREXIA [None]
